FAERS Safety Report 16238452 (Version 1)
Quarter: 2019Q2

REPORT INFORMATION
  Report Type: Spontaneous
  Country: US (occurrence: US)
  Receive Date: 20190425
  Receipt Date: 20190425
  Transmission Date: 20190711
  Serious: Yes (Other)
  Sender: FDA-Public Use
  Company Number: US-PFIZER INC-2019174897

PATIENT
  Age: 57 Year
  Sex: Female
  Weight: 114 kg

DRUGS (2)
  1. GABAPENTIN. [Suspect]
     Active Substance: GABAPENTIN
     Indication: TRIGEMINAL NEURALGIA
     Dosage: 1200 MG, 3X/DAY
     Route: 048
     Dates: start: 2014
  2. KEPPRA [Suspect]
     Active Substance: LEVETIRACETAM
     Indication: TRIGEMINAL NEURALGIA
     Dosage: 500 MG, 2X/DAY
     Route: 048
     Dates: start: 201405

REACTIONS (6)
  - Product use in unapproved indication [Unknown]
  - Polyneuropathy [Unknown]
  - Memory impairment [Unknown]
  - Hepatic steatosis [Unknown]
  - Fibromyalgia [Unknown]
  - Depression [Unknown]

NARRATIVE: CASE EVENT DATE: 2014
